FAERS Safety Report 8366241-6 (Version None)
Quarter: 2012Q1

REPORT INFORMATION
  Report Type: 
  Country: None (occurrence: None)
  Receive Date: 20120323
  Receipt Date: 20110608
  Transmission Date: 20120608
  Serious: Yes (Other)
  Sender: FDA-Public Use
  Company Number: 163-21880-11041456

PATIENT
  Age: 78 Year
  Sex: Female

DRUGS (6)
  1. VITAMIN D (ERGOCALCIFEROL)(UNKNOWN) [Concomitant]
  2. REVLIMID [Suspect]
     Indication: MULTIPLE MYELOMA
     Dosage: 15 MG, DAILY X 21 DAYS EVERY 28 DAYS, PO
     Route: 048
     Dates: start: 20101021
  3. SYNTHROID [Concomitant]
  4. VITAMIN B12 (CYAN000BALAMIN)(UNKNOWN) [Concomitant]
  5. DEXAMETHASONE [Concomitant]
  6. SYNTHROID [Concomitant]

REACTIONS (2)
  - SINUSITIS [None]
  - COUGH [None]
